FAERS Safety Report 11343583 (Version 2)
Quarter: 2016Q3

REPORT INFORMATION
  Report Type: Spontaneous
  Country: BR (occurrence: BR)
  Receive Date: 20150804
  Receipt Date: 20160901
  Transmission Date: 20161109
  Serious: No
  Sender: FDA-Public Use
  Company Number: 2015-001553

PATIENT
  Sex: Female

DRUGS (1)
  1. ENABLEX [Suspect]
     Active Substance: DARIFENACIN HYDROBROMIDE
     Route: 048

REACTIONS (1)
  - No adverse event [Unknown]
